FAERS Safety Report 16755693 (Version 1)
Quarter: 2019Q3

REPORT INFORMATION
  Report Type: Spontaneous
  Country: US (occurrence: US)
  Receive Date: 20190829
  Receipt Date: 20190829
  Transmission Date: 20191005
  Serious: No
  Sender: FDA-Public Use
  Company Number: US-ENDO PHARMACEUTICALS INC-2019-103629

PATIENT
  Sex: Female

DRUGS (3)
  1. PREDNISONE. [Suspect]
     Active Substance: PREDNISONE
     Indication: PRODUCT USED FOR UNKNOWN INDICATION
     Dosage: 3 TIMES DAILY FOR FIVE DAYS
     Route: 048
  2. FASLODEX [Concomitant]
     Active Substance: FULVESTRANT
     Indication: PRODUCT USED FOR UNKNOWN INDICATION
  3. IBRANCE [Concomitant]
     Active Substance: PALBOCICLIB
     Indication: BREAST CANCER

REACTIONS (1)
  - Nausea [Unknown]
